FAERS Safety Report 13234646 (Version 2)
Quarter: 2017Q2

REPORT INFORMATION
  Report Type: Spontaneous
  Country: FR (occurrence: FR)
  Receive Date: 20170215
  Receipt Date: 20170426
  Transmission Date: 20170830
  Serious: Yes (Congenital Anomaly)
  Sender: FDA-Public Use
  Company Number: PHHY2017FR023010

PATIENT
  Age: 0 Day
  Sex: Female
  Weight: 2.75 kg

DRUGS (2)
  1. TRILEPTAL [Suspect]
     Active Substance: OXCARBAZEPINE
     Indication: FOETAL EXPOSURE DURING PREGNANCY
     Dosage: MATERNAL DOSE 2 DF DAILY
     Route: 064
  2. LAMICTAL [Suspect]
     Active Substance: LAMOTRIGINE
     Indication: FOETAL EXPOSURE DURING PREGNANCY
     Dosage: MATERNAL DOSE 20 MG QD
     Route: 064

REACTIONS (3)
  - Plagiocephaly [Recovering/Resolving]
  - Foetal exposure during pregnancy [Unknown]
  - Stereotypy [Unknown]

NARRATIVE: CASE EVENT DATE: 20160205
